FAERS Safety Report 5484147-7 (Version None)
Quarter: 2007Q4

REPORT INFORMATION
  Report Type: 
  Country: None (occurrence: None)
  Receive Date: 20071012
  Receipt Date: 20070724
  Transmission Date: 20080405
  Serious: No
  Sender: FDA-Public Use
  Company Number: US-ASTRAZENECA-2007UW17901

PATIENT
  Age: 78 Year
  Sex: Male
  Weight: 83.9 kg

DRUGS (6)
  1. SYMBICORT PMDI [Suspect]
     Indication: ASTHMA
     Dosage: 2 PUFFS, BID
     Route: 055
     Dates: start: 20070701
  2. SPIRIVA [Suspect]
  3. FOSOMAX [Concomitant]
  4. INHALERS [Concomitant]
  5. AMYRODERONE [Concomitant]
  6. NOSE DROPS [Concomitant]

REACTIONS (1)
  - SKIN DISORDER [None]
